FAERS Safety Report 12231666 (Version 2)
Quarter: 2016Q2

REPORT INFORMATION
  Report Type: Report from Study
  Country: AU (occurrence: AU)
  Receive Date: 20160401
  Receipt Date: 20160420
  Transmission Date: 20160815
  Serious: No
  Sender: FDA-Public Use
  Company Number: AU-ABBVIE-16P-008-1595423-00

PATIENT
  Sex: Female

DRUGS (2)
  1. RIBAVIRIN. [Suspect]
     Active Substance: RIBAVIRIN
     Indication: HEPATITIS C
     Dosage: 1 NOCTE
     Route: 048
     Dates: start: 20151117, end: 20160208
  2. VIEKIRA PAK [Suspect]
     Active Substance: DASABUVIR\OMBITASVIR\PARITAPREVIR\RITONAVIR
     Indication: HEPATITIS C
     Dosage: 12.5/75/50 MG- 2 MANE;  250 MG- 1 BD
     Route: 048
     Dates: start: 20151117, end: 20160208

REACTIONS (1)
  - Fall [Not Recovered/Not Resolved]
